FAERS Safety Report 8121017-X (Version None)
Quarter: 2012Q1

REPORT INFORMATION
  Report Type: 
  Country: None (occurrence: None)
  Receive Date: 20120208
  Receipt Date: 20120127
  Transmission Date: 20120608
  Serious: No
  Sender: FDA-Public Use
  Company Number: JP-NAPPMUNDI-MAG-2012-0002029

PATIENT
  Age: 78 Year
  Sex: Female

DRUGS (5)
  1. BUPRENORPHINE [Suspect]
     Indication: BACK PAIN
     Dosage: 5 MCG, Q1H
     Route: 062
     Dates: start: 20120118, end: 20120120
  2. MEMANTINE HCL [Concomitant]
     Dosage: UNK
     Dates: start: 20090619
  3. TRAMADOL HYDROCHLORIDE AND ACETAMINOPHEN [Concomitant]
     Dosage: UNK
     Dates: start: 20110101
  4. LYRICA [Concomitant]
     Dosage: UNK
     Dates: start: 20110101
  5. ARICEPT [Concomitant]
     Dosage: UNK
     Dates: start: 20090201

REACTIONS (1)
  - MUSCULAR WEAKNESS [None]
